FAERS Safety Report 5633147-2 (Version None)
Quarter: 2008Q1

REPORT INFORMATION
  Report Type: 
  Country: None (occurrence: None)
  Receive Date: 20080221
  Receipt Date: 20080213
  Transmission Date: 20080703
  Serious: Yes (Hospitalization)
  Sender: FDA-Public Use
  Company Number: US-ROCHE-547315

PATIENT
  Age: 47 Year
  Sex: Female

DRUGS (4)
  1. PEG-INTERFERON A-2A (RO 25-8310) [Suspect]
     Dosage: FORMULATION: VIAL
     Route: 065
     Dates: start: 20071109, end: 20071228
  2. PEG-INTERFERON A-2A (RO 25-8310) [Suspect]
     Dosage: FORMULATION: VIAL
     Route: 065
     Dates: start: 20080204
  3. RIBASPHERE [Suspect]
     Route: 065
     Dates: start: 20071111, end: 20071228
  4. RIBASPHERE [Suspect]
     Route: 065
     Dates: start: 20080204

REACTIONS (6)
  - LABORATORY TEST ABNORMAL [None]
  - PLATELET COUNT DECREASED [None]
  - PLEURISY [None]
  - PULMONARY OEDEMA [None]
  - REFUSAL OF TREATMENT BY PATIENT [None]
  - STAPHYLOCOCCAL INFECTION [None]
